FAERS Safety Report 5928105-4 (Version None)
Quarter: 2008Q4

REPORT INFORMATION
  Report Type: 
  Country: None (occurrence: None)
  Receive Date: 20081023
  Receipt Date: 20081015
  Transmission Date: 20090506
  Serious: Yes (Other)
  Sender: FDA-Public Use
  Company Number: DE-ABBOTT-08P-062-0482335-00

PATIENT
  Age: 60 Year
  Sex: Male

DRUGS (6)
  1. AKINETON [Suspect]
     Indication: EXTRAPYRAMIDAL DISORDER
     Route: 042
     Dates: start: 19980101
  2. AKINETON [Suspect]
     Route: 048
  3. AKINETON [Suspect]
     Route: 048
  4. FLUPHENAZINE [Concomitant]
     Indication: DRUG USE FOR UNKNOWN INDICATION
  5. OLANZAPINE [Concomitant]
     Indication: DRUG USE FOR UNKNOWN INDICATION
  6. AKINETON INJECTION NACL-0.9% (PLACEBO) [Concomitant]
     Indication: DRUG USE FOR UNKNOWN INDICATION

REACTIONS (1)
  - DEPENDENCE [None]
